FAERS Safety Report 4772639-5 (Version None)
Quarter: 2005Q3

REPORT INFORMATION
  Report Type: 
  Country: None (occurrence: None)
  Receive Date: 20050915
  Receipt Date: 20050915
  Transmission Date: 20060218
  Serious: Yes (Other)
  Sender: FDA-Public Use
  Company Number: None

PATIENT
  Age: 75 Year
  Sex: Female
  Weight: 53.978 kg

DRUGS (3)
  1. KENALOG [Suspect]
     Indication: ARTHRALGIA
     Dosage: 1- INJECTION
     Dates: start: 20040830
  2. KENALOG [Suspect]
  3. KENALOG [Suspect]

REACTIONS (4)
  - ARTHROPATHY [None]
  - SKIN DISORDER [None]
  - SKIN HAEMORRHAGE [None]
  - SKIN ULCER [None]
